FAERS Safety Report 6395516-5 (Version None)
Quarter: 2009Q4

REPORT INFORMATION
  Report Type: 
  Country: None (occurrence: None)
  Receive Date: 20091009
  Receipt Date: 20091006
  Transmission Date: 20100525
  Serious: Yes (Other)
  Sender: FDA-Public Use
  Company Number: DE-AVENTIS-200912346DE

PATIENT
  Age: 12 Year
  Sex: Female
  Weight: 46.5 kg

DRUGS (2)
  1. CEFOTAXIM [Suspect]
     Dates: start: 20090604, end: 20090605
  2. TOBRAMYCIN [Concomitant]
     Dates: start: 20090604, end: 20090605

REACTIONS (5)
  - AGITATION [None]
  - DISORIENTATION [None]
  - ENCEPHALOPATHY [None]
  - HALLUCINATION [None]
  - SOMNOLENCE [None]
